FAERS Safety Report 25543995 (Version 3)
Quarter: 2025Q3

REPORT INFORMATION
  Report Type: Spontaneous
  Country: US (occurrence: US)
  Receive Date: 20250711
  Receipt Date: 20250730
  Transmission Date: 20251021
  Serious: Yes (Hospitalization)
  Sender: KARYOPHARM THERAPEUTICS
  Company Number: US-KARYOPHARM-2025KPT100479

PATIENT

DRUGS (10)
  1. SELINEXOR [Suspect]
     Active Substance: SELINEXOR
     Indication: Plasma cell myeloma refractory
     Route: 048
     Dates: start: 20240625, end: 2025
  2. DEXAMETHASONE [Concomitant]
     Active Substance: DEXAMETHASONE
  3. ELIQUIS [Concomitant]
     Active Substance: APIXABAN
  4. OLANZAPINE [Concomitant]
     Active Substance: OLANZAPINE
  5. POMALYST [Concomitant]
     Active Substance: POMALIDOMIDE
  6. PREGABALIN [Concomitant]
     Active Substance: PREGABALIN
  7. ROSUVASTATIN [Concomitant]
     Active Substance: ROSUVASTATIN
  8. SUMATRIPTAN [Concomitant]
     Active Substance: SUMATRIPTAN
  9. TAMSULOSIN [Concomitant]
     Active Substance: TAMSULOSIN
  10. VALACYCLOVIR [Concomitant]
     Active Substance: VALACYCLOVIR HYDROCHLORIDE

REACTIONS (1)
  - Full blood count decreased [Unknown]

NARRATIVE: CASE EVENT DATE: 20250701
